FAERS Safety Report 20431090 (Version 2)
Quarter: 2022Q2

REPORT INFORMATION
  Report Type: Spontaneous
  Country: US (occurrence: US)
  Receive Date: 20220204
  Receipt Date: 20220413
  Transmission Date: 20220721
  Serious: No
  Sender: FDA-Public Use
  Company Number: US-PFIZER INC-202200123366

PATIENT
  Age: 9 Year
  Sex: Male

DRUGS (1)
  1. GENOTROPIN [Suspect]
     Active Substance: SOMATROPIN
     Indication: Growth hormone deficiency
     Dosage: UNK (USES 0.8 THREE DAYS A WEEK AND 1 ONE DAY A WEEK TO MAKE 0.9 WITH THE PEN IN THE BUTT OR BELLY)
     Route: 058
     Dates: start: 2021

REACTIONS (5)
  - Product quality issue [Recovered/Resolved]
  - Drug dose omission by device [Unknown]
  - Device breakage [Recovered/Resolved]
  - Device leakage [Recovered/Resolved]
  - Intentional product misuse [Not Recovered/Not Resolved]

NARRATIVE: CASE EVENT DATE: 20220101
